FAERS Safety Report 17388015 (Version 1)
Quarter: 2020Q1

REPORT INFORMATION
  Report Type: Spontaneous
  Country: DE (occurrence: DE)
  Receive Date: 20200206
  Receipt Date: 20200206
  Transmission Date: 20200409
  Serious: Yes (Hospitalization)
  Sender: FDA-Public Use
  Company Number: DE-ALLERGAN-2005070US

PATIENT
  Sex: Female

DRUGS (1)
  1. ESCITALOPRAM OXALATE - BP [Suspect]
     Active Substance: ESCITALOPRAM OXALATE
     Indication: PRODUCT USED FOR UNKNOWN INDICATION
     Dosage: NK MG, NOT KNOWN
     Route: 065

REACTIONS (4)
  - Apathy [Unknown]
  - Dyspnoea [Unknown]
  - Anxiety [Unknown]
  - Depressed mood [Unknown]
